FAERS Safety Report 23047550 (Version 1)
Quarter: 2023Q4

REPORT INFORMATION
  Report Type: Spontaneous
  Country: CA (occurrence: CA)
  Receive Date: 20231010
  Receipt Date: 20231010
  Transmission Date: 20240109
  Serious: Yes (Death, Other)
  Sender: FDA-Public Use
  Company Number: CA-SANDOZ-SDZ2023CA037992

PATIENT
  Age: 81 Year
  Sex: Female

DRUGS (2)
  1. HYRIMOZ [Suspect]
     Active Substance: ADALIMUMAB-ADAZ
     Indication: Crohn^s disease
     Dosage: 40 MG, QW
     Route: 058
  2. HYRIMOZ [Suspect]
     Active Substance: ADALIMUMAB-ADAZ
     Dosage: 80 MG, QW
     Route: 058

REACTIONS (4)
  - Death [Fatal]
  - Dementia Alzheimer^s type [Fatal]
  - Diarrhoea [Fatal]
  - Abdominal pain [Fatal]
